FAERS Safety Report 6151345-9 (Version None)
Quarter: 2009Q2

REPORT INFORMATION
  Report Type: 
  Country: None (occurrence: None)
  Receive Date: 20090408
  Receipt Date: 20090327
  Transmission Date: 20091009
  Serious: Yes (Hospitalization)
  Sender: FDA-Public Use
  Company Number: 2008-01991

PATIENT
  Age: 59 Year
  Sex: Male
  Weight: 182 kg

DRUGS (15)
  1. VELCADE [Suspect]
     Indication: MULTIPLE MYELOMA
     Dosage: 10.8 MG, 8.1 MG, 10.8 MG
     Dates: start: 20071106, end: 20071125
  2. VELCADE [Suspect]
     Indication: MULTIPLE MYELOMA
     Dosage: 10.8 MG, 8.1 MG, 10.8 MG
     Dates: start: 20071205, end: 20071224
  3. VELCADE [Suspect]
     Indication: MULTIPLE MYELOMA
     Dosage: 10.8 MG, 8.1 MG, 10.8 MG
     Dates: start: 20080107, end: 20080126
  4. DOXORUBICIN HCL [Suspect]
     Indication: MULTIPLE MYELOMA
     Dates: start: 20071106, end: 20080126
  5. DEXAMETHASONE TAB [Suspect]
     Indication: MULTIPLE MYELOMA
     Dates: start: 20071106, end: 20080126
  6. MELPHALAN(MELPHALAN) VIAL [Suspect]
     Indication: MULTIPLE MYELOMA
     Dosage: 205 MG, INTRAVENOUS
     Route: 042
     Dates: start: 20080328, end: 20080329
  7. ALIZAPRIDE (ALIZAPRIDE) [Concomitant]
  8. MEROPENEM (MEROPENEM) [Concomitant]
  9. VANCOMYCIN [Concomitant]
  10. MORPHINE [Concomitant]
  11. FLUCONAZOLE [Concomitant]
  12. PIPERACILLIN [Concomitant]
  13. PANTOPRAZOLE SODIUM [Concomitant]
  14. SULFAMETHOXAZOLE AND TRIMETHOPRIM [Concomitant]
  15. ACYCLOVIR [Concomitant]

REACTIONS (2)
  - ATRIAL TACHYCARDIA [None]
  - CARDIOTOXICITY [None]
